FAERS Safety Report 4753971-8 (Version None)
Quarter: 2005Q3

REPORT INFORMATION
  Report Type: 
  Country: None (occurrence: None)
  Receive Date: 20050826
  Receipt Date: 20050812
  Transmission Date: 20060218
  Serious: Yes (Other)
  Sender: FDA-Public Use
  Company Number: 2005115932

PATIENT

DRUGS (1)
  1. VIBRAMYCIN [Suspect]
     Indication: ILL-DEFINED DISORDER

REACTIONS (1)
  - LEUKOCYTOSIS [None]
